FAERS Safety Report 9526593 (Version 1)
Quarter: 2013Q1

REPORT INFORMATION
  Report Type: Spontaneous
  Country: US (occurrence: None)
  Receive Date: 20130305
  Receipt Date: 20130305
  Transmission Date: 20140127
  Serious: Yes (Other)
  Sender: FDA-Public Use
  Company Number: 163-21880-12031306

PATIENT
  Age: 66 Year
  Sex: Male
  Weight: 98.43 kg

DRUGS (11)
  1. REVLIMID (LENALIDOMIDE) (25 MILLIGRAM, CAPSULES) [Suspect]
     Indication: PLASMA CELL MYELOMA
     Route: 048
     Dates: start: 201003
  2. DEXAMETHASONE (DEXAMETHASONE) [Concomitant]
  3. GABAPENTIN (GABAPENTIN) [Concomitant]
  4. LYRICA (PREGABALIN) [Concomitant]
  5. HYDROCODONE (HYDROCODONE) [Concomitant]
  6. ASA (ACETYLSALICYLIC ACID) [Concomitant]
  7. STOOL SOFTENER (DOCUSATE SODIUM) [Concomitant]
  8. MOBIC (MELOXICAM) [Concomitant]
  9. VALTREX (VALACICLOVIR HYDROCHLORIDE) [Concomitant]
  10. XYLOXYLIN (ANALGESICS) (SUSPENSION) [Concomitant]
  11. OMEPRAZOLE (OMEPRAZOLE) [Concomitant]

REACTIONS (2)
  - Anaemia [None]
  - Blood pressure decreased [None]
